FAERS Safety Report 5441700-4 (Version None)
Quarter: 2007Q3

REPORT INFORMATION
  Report Type: 
  Country: None (occurrence: None)
  Receive Date: 20070829
  Receipt Date: 20070802
  Transmission Date: 20080115
  Serious: Yes (Death)
  Sender: FDA-Public Use
  Company Number: 2007AP000924

PATIENT
  Age: 23 Year
  Sex: Female

DRUGS (5)
  1. SERTRALINE HYDROCHLORIDE [Suspect]
     Indication: DEPRESSION
     Dosage: PO
     Route: 048
  2. ETHINYL ESTRADIOL TAB [Concomitant]
  3. LEVONORGESTREL (LEVONOGESTREL) [Concomitant]
  4. IBUPROFEN [Concomitant]
  5. ANTIBIOTICS (ANTIBIOTICS) [Concomitant]

REACTIONS (1)
  - ARRHYTHMIA [None]
